FAERS Safety Report 13986821 (Version 1)
Quarter: 2017Q3

REPORT INFORMATION
  Report Type: Spontaneous
  Country: GB (occurrence: GB)
  Receive Date: 20170919
  Receipt Date: 20170919
  Transmission Date: 20171128
  Serious: Yes (Death, Other)
  Sender: FDA-Public Use
  Company Number: GB-TEVA-805428ACC

PATIENT
  Age: 44 Year
  Sex: Female

DRUGS (5)
  1. COCODAMOL [Suspect]
     Active Substance: ACETAMINOPHEN\CODEINE PHOSPHATE
     Indication: PAIN
     Route: 048
  2. COCODAMOL [Suspect]
     Active Substance: ACETAMINOPHEN\CODEINE PHOSPHATE
     Indication: PAIN
     Route: 048
  3. MORPHINE [Suspect]
     Active Substance: MORPHINE
     Dosage: 6 OR 7
     Route: 065
  4. PREGABALIN. [Suspect]
     Active Substance: PREGABALIN
     Route: 065
  5. ZOPICLONE [Suspect]
     Active Substance: ZOPICLONE
     Indication: SLEEP DISORDER
     Route: 048

REACTIONS (7)
  - Eye pain [Fatal]
  - Dysarthria [Fatal]
  - Gait disturbance [Fatal]
  - Vision blurred [Fatal]
  - Prescription drug used without a prescription [Fatal]
  - Toxicity to various agents [Fatal]
  - Accidental overdose [Unknown]
